FAERS Safety Report 4491851-6 (Version None)
Quarter: 2004Q4

REPORT INFORMATION
  Report Type: 
  Country: None (occurrence: None)
  Receive Date: 20041028
  Receipt Date: 20041028
  Transmission Date: 20050328
  Serious: Yes (Life-Threatening, Hospitalization)
  Sender: FDA-Public Use
  Company Number: None

PATIENT
  Age: 54 Year
  Sex: Male

DRUGS (2)
  1. NADOLOL [Suspect]
     Indication: HYPERTENSION
     Dosage: 40 MG QD ORAL
     Route: 048
     Dates: start: 20040701, end: 20040820
  2. VERAPAMIL SR  240 MG MYLAN [Suspect]
     Indication: HYPERTENSION
     Dosage: 240 MG QD ORAL
     Route: 048
     Dates: start: 20040818, end: 20040820

REACTIONS (8)
  - ATRIOVENTRICULAR BLOCK [None]
  - BLOOD PRESSURE INADEQUATELY CONTROLLED [None]
  - BRADYCARDIA [None]
  - COMA [None]
  - DRUG INTERACTION [None]
  - DRUG INTOLERANCE [None]
  - HYPOTENSION [None]
  - INCOHERENT [None]
